FAERS Safety Report 14979328 (Version 1)
Quarter: 2018Q2

REPORT INFORMATION
  Report Type: Report from Study
  Country: CO (occurrence: CO)
  Receive Date: 20180606
  Receipt Date: 20180606
  Transmission Date: 20180711
  Serious: Yes (Hospitalization, Other)
  Sender: FDA-Public Use
  Company Number: CO-SA-2018SA141679

PATIENT
  Age: 64 Year
  Sex: Male

DRUGS (1)
  1. INSULIN GLARGINE [Suspect]
     Active Substance: INSULIN GLARGINE
     Dosage: 25 IU, QD
     Route: 058
     Dates: start: 20160510

REACTIONS (2)
  - Diabetic coma [Unknown]
  - Renal disorder [Unknown]

NARRATIVE: CASE EVENT DATE: 201803
